FAERS Safety Report 5529586-0 (Version None)
Quarter: 2007Q4

REPORT INFORMATION
  Report Type: 
  Country: None (occurrence: None)
  Receive Date: 20071129
  Receipt Date: 20071119
  Transmission Date: 20080405
  Serious: Yes (Other)
  Sender: FDA-Public Use
  Company Number: DK-PFIZER INC-2006128592

PATIENT
  Sex: Female

DRUGS (3)
  1. LYRICA [Suspect]
     Indication: NEURALGIA
     Route: 048
     Dates: start: 20060706, end: 20060710
  2. CALCIUM CARBONATE/MAGNESIUM HYDROXIDE [Concomitant]
     Route: 048
  3. HERBAL PREPARATION [Concomitant]
     Route: 048

REACTIONS (10)
  - CARTILAGE INJURY [None]
  - DIZZINESS [None]
  - FATIGUE [None]
  - JOINT DISLOCATION [None]
  - MUSCLE TIGHTNESS [None]
  - MYALGIA [None]
  - NERVE COMPRESSION [None]
  - PALPITATIONS [None]
  - PARAESTHESIA [None]
  - TREMOR [None]
